FAERS Safety Report 4337391-6 (Version None)
Quarter: 2004Q2

REPORT INFORMATION
  Report Type: 
  Country: None (occurrence: None)
  Receive Date: 20040406
  Receipt Date: 20040202
  Transmission Date: 20050107
  Serious: Yes (Hospitalization)
  Sender: FDA-Public Use
  Company Number: 357977

PATIENT
  Age: 39 Year
  Sex: Male
  Weight: 65.8 kg

DRUGS (1)
  1. FUZEON [Suspect]
     Indication: HIV INFECTION
     Dosage: 90 MG/ML 2 PER DAY SUBCUTANEOUS
     Route: 058
     Dates: start: 20030715, end: 20040128

REACTIONS (4)
  - CELLULITIS [None]
  - INJECTION SITE REACTION [None]
  - MEDICATION ERROR [None]
  - SKIN HYPERTROPHY [None]
